FAERS Safety Report 6087218-X (Version None)
Quarter: 2009Q1

REPORT INFORMATION
  Report Type: 
  Country: None (occurrence: None)
  Receive Date: 20090219
  Receipt Date: 20090219
  Transmission Date: 20090719
  Serious: Yes (Other)
  Sender: FDA-Public Use
  Company Number: None

PATIENT
  Sex: Female
  Weight: 84.8226 kg

DRUGS (2)
  1. CLOZAPINE [Suspect]
     Indication: SCHIZOPHRENIA
     Dosage: CLOZAPINE 275 MG/DAY PO
     Route: 048
     Dates: start: 19950101, end: 20090218
  2. CLOZAPINE [Suspect]

REACTIONS (3)
  - FEAR [None]
  - PARANOIA [None]
  - PRODUCT QUALITY ISSUE [None]
